FAERS Safety Report 9513782 (Version 1)
Quarter: 2013Q1

REPORT INFORMATION
  Report Type: Spontaneous
  Country: US (occurrence: None)
  Receive Date: 20130305
  Receipt Date: 20130305
  Transmission Date: 20140127
  Serious: Yes (Other)
  Sender: FDA-Public Use
  Company Number: 163-21880-12102318

PATIENT
  Age: 65 Year
  Sex: Male
  Weight: 81.65 kg

DRUGS (13)
  1. REVLIMID (LENALIDOMIDE) (15 MILLIGRAM, CAPSULES) [Suspect]
     Indication: PLASMA CELL MYELOMA
     Dosage: 15 MG, 21 IN 21, PO
     Route: 048
     Dates: start: 20110128
  2. ASPIRIN (ACETYLSALICYLIC ACID) (UNKNOWN) (ACETYLSALICYLIC ACID) [Concomitant]
  3. CALCIUM (CALCIUM) (UNKNOWN) [Concomitant]
  4. CYMBALTA (DULOXETINE HYDROCHLORIDE) (UNKNOWN) [Concomitant]
  5. DHEA (PRASTERONE) (UNKNOWN) [Concomitant]
  6. FENTANYL (FENTANYL) (POULTICE OR PATCH) [Concomitant]
  7. FISH OIL (FISH OIL) (UNKNOWN) [Concomitant]
  8. IMODIUM (LOPERAMIDE HYDROCHLORIDE) (UNKNOWN) [Concomitant]
  9. SENOKOT (SENNA FRUIT) (UNKNOWN) [Concomitant]
  10. TRAMADOL (TRAMADOL) (UNKNOWN) [Concomitant]
  11. VITAMIN D (ERGOCALCIFEROL) (UNKNOWN) [Concomitant]
  12. ZOFRAN (ONDANSETRON HYDROCHLORIDE) (UNKNOWN) [Concomitant]
  13. ZOMETA (ZOLEDRONIC ACID) (UNKNOWN) [Concomitant]

REACTIONS (1)
  - Diarrhoea [None]
